FAERS Safety Report 16973750 (Version 4)
Quarter: 2019Q4

REPORT INFORMATION
  Report Type: Spontaneous
  Country: US (occurrence: US)
  Receive Date: 20191030
  Receipt Date: 20191230
  Transmission Date: 20200122
  Serious: No
  Sender: FDA-Public Use
  Company Number: US-PFIZER INC-2019466060

PATIENT
  Age: 44 Year
  Sex: Female

DRUGS (5)
  1. IBRANCE [Suspect]
     Active Substance: PALBOCICLIB
     Indication: BREAST CANCER
     Dosage: 125 MG, CYCLIC (QD (ONCE A DAY) 3WKS ON AND 1 WK OFF)
     Route: 048
     Dates: start: 20191003
  2. FASLODEX [Concomitant]
     Active Substance: FULVESTRANT
     Indication: BREAST CANCER
     Dosage: UNK
     Dates: start: 20191004
  3. XGEVA [Concomitant]
     Active Substance: DENOSUMAB
     Indication: METASTASES TO BONE
     Dosage: UNK
     Dates: start: 20190301
  4. PERCOCET [Concomitant]
     Active Substance: ACETAMINOPHEN\OXYCODONE HYDROCHLORIDE
     Indication: PAIN
     Dosage: UNK
     Dates: start: 20191004
  5. XGEVA [Concomitant]
     Active Substance: DENOSUMAB
     Indication: BREAST CANCER

REACTIONS (5)
  - Diarrhoea [Recovered/Resolved]
  - Neoplasm progression [Unknown]
  - Fatigue [Recovered/Resolved]
  - Malaise [Recovered/Resolved]
  - Nausea [Unknown]

NARRATIVE: CASE EVENT DATE: 2019
